FAERS Safety Report 9636161 (Version 2)
Quarter: 2014Q2

REPORT INFORMATION
  Report Type: Spontaneous
  Country: US (occurrence: US)
  Receive Date: 20131021
  Receipt Date: 20140407
  Transmission Date: 20141212
  Serious: Yes (Hospitalization)
  Sender: FDA-Public Use
  Company Number: US-B.I. PHARMACEUTICALS,INC./RIDGEFIELD-2013-BI-32808BP

PATIENT
  Sex: Female
  Weight: 63.5 kg

DRUGS (16)
  1. PRADAXA [Suspect]
     Indication: ATRIAL FIBRILLATION
     Dosage: 300 MG
     Route: 048
     Dates: start: 20110401, end: 20111106
  2. TOPROL [Concomitant]
     Dosage: 50 MG
     Route: 065
  3. ALBUTEROL [Concomitant]
     Dosage: 8 PUF
     Route: 065
  4. AMBIEN [Concomitant]
     Dosage: 10 MG
     Route: 065
  5. PREVACID [Concomitant]
     Dosage: 30 MG
     Route: 065
  6. SYNTHROID [Concomitant]
     Dosage: 50 MCG
     Route: 065
  7. ALLEGRA [Concomitant]
     Dosage: 180 MG
     Route: 065
  8. AVAPRO [Concomitant]
     Dosage: 300 MG
     Route: 065
  9. LIPITOR [Concomitant]
     Dosage: 40 MG
     Route: 065
  10. SPIRIVA [Concomitant]
     Route: 055
  11. CARDIZEM CD [Concomitant]
     Dosage: 120 MG
     Route: 048
  12. SYMBICORT [Concomitant]
     Dosage: 4 PUF
     Route: 065
  13. LASIX [Concomitant]
     Dosage: 40 MG
     Route: 065
  14. VALIUM [Concomitant]
     Dosage: 5 MG
     Route: 065
  15. SINGULAIR [Concomitant]
     Dosage: 10 MG
     Route: 065
  16. CALCIUM [Concomitant]
     Dosage: 1200 MG
     Route: 065

REACTIONS (9)
  - Lower gastrointestinal haemorrhage [Unknown]
  - Acute myocardial infarction [Unknown]
  - Haemorrhagic anaemia [Unknown]
  - Fluid overload [Unknown]
  - Respiratory failure [Unknown]
  - Renal failure acute [Unknown]
  - Coagulopathy [Unknown]
  - Organ failure [Unknown]
  - Epistaxis [Unknown]
